FAERS Safety Report 10949454 (Version 1)
Quarter: 2015Q1

REPORT INFORMATION
  Report Type: Report from Study
  Country: FR (occurrence: FR)
  Receive Date: 20150324
  Receipt Date: 20150324
  Transmission Date: 20150721
  Serious: Yes (Other)
  Sender: FDA-Public Use
  Company Number: FR-ABBVIE-15K-056-1362385-00

PATIENT

DRUGS (4)
  1. HUMIRA [Suspect]
     Active Substance: ADALIMUMAB
     Indication: RHEUMATOID ARTHRITIS
     Route: 065
  2. METHOTREXATE [Concomitant]
     Active Substance: METHOTREXATE
     Indication: RHEUMATOID ARTHRITIS
  3. PREVISCAN [Concomitant]
     Active Substance: FLUINDIONE
     Indication: ANTIPHOSPHOLIPID SYNDROME
  4. ENBREL [Concomitant]
     Active Substance: ETANERCEPT
     Indication: RHEUMATOID ARTHRITIS

REACTIONS (6)
  - Renal hypertrophy [Unknown]
  - Rheumatoid arthritis [Unknown]
  - Renal cyst [Unknown]
  - Infection [Unknown]
  - Systemic lupus erythematosus [Unknown]
  - Pulmonary microemboli [Unknown]
